FAERS Safety Report 7094165-3 (Version None)
Quarter: 2010Q4

REPORT INFORMATION
  Report Type: 
  Country: None (occurrence: None)
  Receive Date: 20101110
  Receipt Date: 20101102
  Transmission Date: 20110411
  Serious: No
  Sender: FDA-Public Use
  Company Number: US-MERCK-1010USA03391

PATIENT
  Age: 52 Year
  Sex: Female

DRUGS (4)
  1. FOSAMAX [Suspect]
     Indication: OSTEOPOROSIS
     Route: 048
     Dates: start: 20100201, end: 20100301
  2. AMITRIPTYLINE HYDROCHLORIDE [Concomitant]
     Route: 065
  3. RESTASIS [Concomitant]
     Route: 065
  4. VITAMIN D (UNSPECIFIED) [Concomitant]
     Route: 065

REACTIONS (1)
  - ALOPECIA AREATA [None]
